FAERS Safety Report 6318199-9 (Version None)
Quarter: 2009Q3

REPORT INFORMATION
  Report Type: 
  Country: None (occurrence: None)
  Receive Date: 20090821
  Receipt Date: 20090812
  Transmission Date: 20100115
  Serious: Yes (Other)
  Sender: FDA-Public Use
  Company Number: B0588796A

PATIENT
  Sex: Male

DRUGS (5)
  1. ARIXTRA [Suspect]
     Indication: DRUG USE FOR UNKNOWN INDICATION
     Route: 065
  2. CLOPIDOGREL [Concomitant]
  3. ASPIRIN [Concomitant]
  4. WARFARIN [Concomitant]
  5. BETABLOCKER [Concomitant]

REACTIONS (1)
  - THROMBOCYTOPENIA [None]
